FAERS Safety Report 14928194 (Version 3)
Quarter: 2018Q3

REPORT INFORMATION
  Report Type: Spontaneous
  Country: JP (occurrence: JP)
  Receive Date: 20180523
  Receipt Date: 20180724
  Transmission Date: 20181010
  Serious: Yes (Death, Other)
  Sender: FDA-Public Use
  Company Number: JP-PFIZER INC-2018206325

PATIENT
  Age: 82 Year
  Sex: Male
  Weight: 44.9 kg

DRUGS (10)
  1. DOXORUBICIN HCL [Suspect]
     Active Substance: DOXORUBICIN HYDROCHLORIDE
     Indication: ENTEROPATHY-ASSOCIATED T-CELL LYMPHOMA
  2. VINCRISTINE [Suspect]
     Active Substance: VINCRISTINE
     Indication: ENTEROPATHY-ASSOCIATED T-CELL LYMPHOMA
  3. PREDNISOLONE. [Suspect]
     Active Substance: PREDNISOLONE
     Indication: T-CELL LYMPHOMA
     Dosage: UNK, CYCLIC (6 CYCLES OF CHOP, TOTAL OF 6 COURSES; FOUR MONTHS)
  4. PREDNISONE. [Suspect]
     Active Substance: PREDNISONE
     Indication: ENTEROPATHY-ASSOCIATED T-CELL LYMPHOMA
  5. CYCLOPHOSPHAMIDE. [Suspect]
     Active Substance: CYCLOPHOSPHAMIDE
     Indication: T-CELL LYMPHOMA
     Dosage: UNK, CYCLIC (6 CYCLES OF CHOP, TOTAL OF 6 COURSES; FOUR MONTHS)
  6. PREDNISOLONE. [Suspect]
     Active Substance: PREDNISOLONE
     Indication: ENTEROPATHY-ASSOCIATED T-CELL LYMPHOMA
  7. DOXORUBICIN HCL [Suspect]
     Active Substance: DOXORUBICIN HYDROCHLORIDE
     Indication: T-CELL LYMPHOMA
     Dosage: UNK, CYCLIC (6 CYCLES OF CHOP, TOTAL OF 6 COURSES; FOUR MONTHS)
  8. VINCRISTINE [Suspect]
     Active Substance: VINCRISTINE
     Indication: T-CELL LYMPHOMA
     Dosage: UNK, CYCLIC (6 CYCLES OF CHOP, TOTAL OF 6 COURSES; FOUR MONTHS)
  9. CYCLOPHOSPHAMIDE. [Suspect]
     Active Substance: CYCLOPHOSPHAMIDE
     Indication: ENTEROPATHY-ASSOCIATED T-CELL LYMPHOMA
  10. PREDNISONE. [Suspect]
     Active Substance: PREDNISONE
     Indication: T-CELL LYMPHOMA
     Dosage: UNK, CYCLIC (6 CYCLES OF CHOP, TOTAL OF 6 COURSES; FOUR MONTHS)

REACTIONS (2)
  - Duodenal perforation [Fatal]
  - Abdominal abscess [Fatal]
